FAERS Safety Report 13539321 (Version 3)
Quarter: 2017Q4

REPORT INFORMATION
  Report Type: Spontaneous
  Country: CN (occurrence: CN)
  Receive Date: 20170512
  Receipt Date: 20171109
  Transmission Date: 20180320
  Serious: Yes (Life-Threatening, Hospitalization, Other)
  Sender: FDA-Public Use
  Company Number: CN-SUN PHARMACEUTICAL INDUSTRIES LTD-2017RR-140043

PATIENT
  Age: 87 Year
  Sex: Female

DRUGS (2)
  1. CAPECITABINE. [Suspect]
     Active Substance: CAPECITABINE
     Indication: BREAST CANCER
     Dosage: 500 MG, TID, EVERY DAY, FOR 9 AND 12 COURSES
     Route: 048
  2. ANASTROZOL [Suspect]
     Active Substance: ANASTROZOLE
     Indication: INVASIVE LOBULAR BREAST CARCINOMA
     Dosage: 1 G, DAILY
     Route: 065

REACTIONS (5)
  - Fatigue [Unknown]
  - Diarrhoea [Unknown]
  - Drug ineffective [Unknown]
  - Decreased appetite [Unknown]
  - Therapeutic response decreased [Unknown]
